FAERS Safety Report 4277058-6 (Version None)
Quarter: 2004Q1

REPORT INFORMATION
  Report Type: 
  Country: None (occurrence: None)
  Receive Date: 20040120
  Receipt Date: 20040105
  Transmission Date: 20041129
  Serious: Yes (Disabling)
  Sender: FDA-Public Use
  Company Number: 2004-111593-NL

PATIENT
  Age: 17 Year
  Sex: Female

DRUGS (6)
  1. DANAPAROID [Suspect]
     Indication: THROMBOSIS PROPHYLAXIS
     Dosage: 30 MG/KG ONCE/4 MG/KG Q1HR
  2. ACTIVASE [Suspect]
     Indication: THROMBOSIS PROPHYLAXIS
     Dosage: DF
  3. DIPYRIDAMOLE [Suspect]
     Indication: THROMBOSIS PROPHYLAXIS
     Dosage: DF
  4. PHENYTOIN [Concomitant]
  5. CARBAMAZEPINE [Concomitant]
  6. HEPARIN [Concomitant]

REACTIONS (7)
  - DRUG INEFFECTIVE [None]
  - HYPOAESTHESIA [None]
  - LEG AMPUTATION [None]
  - PAIN [None]
  - PALLOR [None]
  - PERIPHERAL COLDNESS [None]
  - PULSE ABSENT [None]
